FAERS Safety Report 5523121-9 (Version None)
Quarter: 2007Q4

REPORT INFORMATION
  Report Type: 
  Country: None (occurrence: None)
  Receive Date: 20071121
  Receipt Date: 20071114
  Transmission Date: 20080405
  Serious: Yes (Other)
  Sender: FDA-Public Use
  Company Number: US-ASTRAZENECA-2007UW26425

PATIENT
  Age: 68 Year
  Sex: Female
  Weight: 88.9 kg

DRUGS (9)
  1. SEROQUEL [Suspect]
     Indication: DEMENTIA ALZHEIMER'S TYPE
     Route: 048
     Dates: start: 20070701
  2. DEPAKOTE [Concomitant]
  3. ARICEPT [Concomitant]
  4. LIPITOR [Concomitant]
  5. NAMENDA [Concomitant]
  6. OSCAL [Concomitant]
  7. FOLBIC [Concomitant]
  8. ASPIRIN [Concomitant]
  9. CITALOPRAM [Concomitant]

REACTIONS (5)
  - DYSKINESIA [None]
  - GAIT DISTURBANCE [None]
  - POLLAKIURIA [None]
  - TREMOR [None]
  - WEIGHT INCREASED [None]
